FAERS Safety Report 15929293 (Version 1)
Quarter: 2019Q1

REPORT INFORMATION
  Report Type: Report from Study
  Country: CA (occurrence: CA)
  Receive Date: 20190206
  Receipt Date: 20190206
  Transmission Date: 20190417
  Serious: Yes (Death, Hospitalization)
  Sender: FDA-Public Use
  Company Number: CA-ACTELION-A-US2018-180311

PATIENT
  Age: 88 Year
  Sex: Male

DRUGS (15)
  1. TRACLEER [Suspect]
     Active Substance: BOSENTAN
     Indication: PULMONARY ARTERIAL HYPERTENSION
     Dosage: 62.5 MG, UNK
     Route: 048
  2. POTASSIUM [Concomitant]
     Active Substance: POTASSIUM
  3. PREDNISONE. [Concomitant]
     Active Substance: PREDNISONE
  4. ACETAMINOPHEN. [Concomitant]
     Active Substance: ACETAMINOPHEN
  5. SPIRONOLACTONE. [Concomitant]
     Active Substance: SPIRONOLACTONE
  6. VITAMIN D [Concomitant]
     Active Substance: CHOLECALCIFEROL
  7. TRACLEER [Suspect]
     Active Substance: BOSENTAN
     Dosage: 125 MG, UNK
     Route: 048
     Dates: start: 20180919
  8. TAMSULOSIN [Concomitant]
     Active Substance: TAMSULOSIN
  9. FUROSEMIDE. [Concomitant]
     Active Substance: FUROSEMIDE
  10. ELIQUIS [Concomitant]
     Active Substance: APIXABAN
  11. PREGABALIN. [Concomitant]
     Active Substance: PREGABALIN
  12. PANTOPRAZOLE [Concomitant]
     Active Substance: PANTOPRAZOLE
  13. LENOLTECH NO 3 [Concomitant]
  14. HUMALOG [Concomitant]
     Active Substance: INSULIN LISPRO
  15. MULTIVITAMIN [Concomitant]
     Active Substance: VITAMINS

REACTIONS (2)
  - Pneumonia [Not Recovered/Not Resolved]
  - Death [Fatal]

NARRATIVE: CASE EVENT DATE: 20190122
